FAERS Safety Report 9605860 (Version 1)
Quarter: 2013Q4

REPORT INFORMATION
  Report Type: Spontaneous
  Country: US (occurrence: US)
  Receive Date: 20131008
  Receipt Date: 20131008
  Transmission Date: 20140711
  Serious: No
  Sender: FDA-Public Use
  Company Number: US-AMGEN-USASP2013040658

PATIENT
  Age: 65 Year
  Sex: Female

DRUGS (3)
  1. XGEVA [Suspect]
     Indication: METASTASES TO BONE
     Dosage: UNK
  2. FASLODEX                           /01285001/ [Concomitant]
  3. CHEMOTHERAPEUTICS [Concomitant]

REACTIONS (1)
  - Bone pain [Unknown]
